FAERS Safety Report 5273212-5 (Version None)
Quarter: 2007Q1

REPORT INFORMATION
  Report Type: 
  Country: None (occurrence: None)
  Receive Date: 20070319
  Receipt Date: 20070306
  Transmission Date: 20070707
  Serious: Yes (Hospitalization)
  Sender: FDA-Public Use
  Company Number: 226825

PATIENT
  Age: 7 Year
  Sex: Male
  Weight: 28.7 kg

DRUGS (3)
  1. NUTROPIN AQ [Suspect]
     Indication: OPTIC NERVE HYPOPLASIA
     Dosage: 1 MG, 7/WEEK, SUBCUTANEOUS
     Route: 058
     Dates: start: 20020523
  2. CORTEF [Concomitant]
  3. SYNTHROID [Concomitant]

REACTIONS (5)
  - BLOOD GLUCOSE DECREASED [None]
  - BLOOD THYROID STIMULATING HORMONE DECREASED [None]
  - DEHYDRATION [None]
  - GASTROENTERITIS [None]
  - ROTAVIRUS TEST POSITIVE [None]
